FAERS Safety Report 6613159-2 (Version None)
Quarter: 2010Q1

REPORT INFORMATION
  Report Type: 
  Country: None (occurrence: None)
  Receive Date: 20100304
  Receipt Date: 20100225
  Transmission Date: 20100710
  Serious: Yes (Hospitalization)
  Sender: FDA-Public Use
  Company Number: NL-WYE-G05522610

PATIENT
  Age: 23 Year
  Sex: Male
  Weight: 108 kg

DRUGS (2)
  1. EFFEXOR XR [Suspect]
     Indication: POST-TRAUMATIC STRESS DISORDER
     Dates: start: 20070203
  2. VENTAVIS [Concomitant]
     Dosage: UNK
     Dates: start: 20080101

REACTIONS (6)
  - EJACULATION DISORDER [None]
  - FLAT AFFECT [None]
  - HEADACHE [None]
  - HYPERVENTILATION [None]
  - MUSCULOSKELETAL STIFFNESS [None]
  - WEIGHT INCREASED [None]
